FAERS Safety Report 6467534-X (Version None)
Quarter: 2009Q4

REPORT INFORMATION
  Report Type: 
  Country: None (occurrence: None)
  Receive Date: 20091130
  Receipt Date: 20091109
  Transmission Date: 20100525
  Serious: Yes (Other)
  Sender: FDA-Public Use
  Company Number: 8054611

PATIENT
  Age: 56 Year
  Sex: Male

DRUGS (1)
  1. CIMZIA [Suspect]
     Dosage: 400 MG M SC
     Route: 058
     Dates: start: 20090123

REACTIONS (3)
  - COLONOSCOPY [None]
  - OESOPHAGOGASTRODUODENOSCOPY [None]
  - URINARY RETENTION [None]
